FAERS Safety Report 8425582-4 (Version None)
Quarter: 2012Q2

REPORT INFORMATION
  Report Type: 
  Country: None (occurrence: None)
  Receive Date: 20120531
  Receipt Date: 20120515
  Transmission Date: 20120825
  Serious: Yes (Hospitalization, Other)
  Sender: FDA-Public Use
  Company Number: ACO_30385_2012

PATIENT
  Age: 38 Year
  Sex: Female

DRUGS (3)
  1. METHYLPREDNISOLONE [Concomitant]
  2. FAMPRIDINE-SR (FAMPRIDINE) TABLET [Suspect]
     Indication: MULTIPLE SCLEROSIS
     Dosage: 10 MG, BID, ORAL
     Route: 048
     Dates: start: 20120410, end: 20120511
  3. ESTROPROGESTINICI (PROGESTERONE) [Concomitant]

REACTIONS (2)
  - CEREBRAL VENOUS THROMBOSIS [None]
  - MULTIPLE SCLEROSIS RELAPSE [None]
